FAERS Safety Report 4373366-9 (Version None)
Quarter: 2004Q2

REPORT INFORMATION
  Report Type: 
  Country: None (occurrence: None)
  Receive Date: 20040603
  Receipt Date: 20040525
  Transmission Date: 20050107
  Serious: Yes (Other)
  Sender: FDA-Public Use
  Company Number: US-JNJFOC-20040506502

PATIENT
  Age: 11 Year
  Sex: Female
  Weight: 19.0511 kg

DRUGS (1)
  1. TOPAMAX [Suspect]
     Indication: CONVULSION
     Dosage: 125 MG, 2 IN 1 DAY, ORAL
     Route: 048

REACTIONS (3)
  - CYANOSIS [None]
  - HYPERPHAGIA [None]
  - WEIGHT DECREASED [None]
